FAERS Safety Report 7819209-X (Version None)
Quarter: 2011Q4

REPORT INFORMATION
  Report Type: 
  Country: None (occurrence: None)
  Receive Date: 20111012
  Receipt Date: 20110926
  Transmission Date: 20120403
  Serious: Yes (Hospitalization)
  Sender: FDA-Public Use
  Company Number: 2011100037

PATIENT
  Age: 45 Year
  Sex: Male

DRUGS (21)
  1. INEGY (EZETIMIBE, SIMVASTATIN) [Concomitant]
  2. VILDAGLIPTIN (VILDAGLIPTIN) [Concomitant]
  3. ALEGLITAZAR (ALEGLITAZAR) [Suspect]
     Indication: CARDIOVASCULAR EVENT PROPHYLAXIS
     Dosage: SEE IMAGE
     Route: 048
     Dates: start: 20110215
  4. ALEGLITAZAR (ALEGLITAZAR) [Suspect]
     Indication: CARDIOVASCULAR EVENT PROPHYLAXIS
     Dosage: SEE IMAGE
     Route: 048
     Dates: start: 20110215
  5. PANTOPRAZOLE [Concomitant]
  6. ALISKIREN (ALISKIREN FUMARATE) [Concomitant]
  7. CATAPRESSAN (CLONIDINE HYDROCHLORIDE) [Concomitant]
  8. OMEGA-3 ACID ETHYL ESTERS (OMEGA-3 ACID ETHYL ESTERS) [Concomitant]
  9. SPIRONOLACTONE [Suspect]
     Indication: PRODUCT USED FOR UNKNOWN INDICATION
     Dosage: 1 DOSAGE FORMS (1 DOSAGE FORMS,1 IN 1 D)
     Dates: start: 20110504
  10. CLOPIDOGREL BISULFATE [Concomitant]
  11. AMLODIPINE [Concomitant]
  12. LEVEMIR [Concomitant]
  13. NITROLINGUAL (NITROGLYCERIN) [Concomitant]
  14. METFORMIN HCL [Concomitant]
  15. LIPROLOG (LISPRO INSULIN) [Concomitant]
  16. NEBIVOLOL HCL [Concomitant]
  17. ALLOPURINOL [Concomitant]
  18. TORSEMIDE [Suspect]
     Indication: PRODUCT USED FOR UNKNOWN INDICATION
     Dosage: 10 MG (10 MG,1 IN 1 D)
     Dates: start: 20100108
  19. ASPIRIN [Concomitant]
  20. HYDROCHLOROTHIAZIDE [Concomitant]
  21. DIOVAN [Concomitant]

REACTIONS (5)
  - RENAL IMPAIRMENT [None]
  - HYPERKALAEMIA [None]
  - CAROTID ARTERY STENOSIS [None]
  - HYPERTENSIVE CRISIS [None]
  - VOMITING [None]
